FAERS Safety Report 18478434 (Version 1)
Quarter: 2020Q4

REPORT INFORMATION
  Report Type: Report from Study
  Country: DE (occurrence: DE)
  Receive Date: 20201109
  Receipt Date: 20201109
  Transmission Date: 20210114
  Serious: Yes (Other)
  Sender: FDA-Public Use
  Company Number: DE-BEIGENE AUS PTY LTD-BGN-2020-002273

PATIENT

DRUGS (16)
  1. TISLELIZUMAB [Suspect]
     Active Substance: TISLELIZUMAB
     Indication: RICHTER^S SYNDROME
     Dosage: 200 MILLIGRAM
     Route: 042
     Dates: start: 20200218
  2. HYDROMORPHON CT [Concomitant]
     Dosage: 1, 3 MG
     Dates: start: 20200219
  3. ZANUBRUTINIB [Suspect]
     Active Substance: ZANUBRUTINIB
     Indication: RICHTER^S SYNDROME
     Dosage: 320 MILLIGRAM
     Route: 048
     Dates: start: 20200218
  4. FAMOTIDIN [Concomitant]
     Active Substance: FAMOTIDINE
     Dosage: 20 MILLIGRAM
     Dates: start: 20200203
  5. LASIX [Concomitant]
     Active Substance: FUROSEMIDE
     Dosage: 40 MILLIGRAM, PRN
     Dates: start: 20200203
  6. CAPROS AKUT [Concomitant]
     Dosage: 5 MILLIGRAM, PRN
     Dates: start: 20200203
  7. JONOSTERIL [Concomitant]
     Dosage: PRN
     Dates: start: 20200203
  8. IBANDRONATE SODIUM. [Concomitant]
     Active Substance: IBANDRONATE SODIUM
     Dosage: 2 MILLIGRAM, QMO
     Dates: start: 20200203
  9. VALTREX [Concomitant]
     Active Substance: VALACYCLOVIR HYDROCHLORIDE
     Dosage: 500 MILLIGRAM
     Dates: start: 20200211
  10. MOVICOL [Concomitant]
     Active Substance: POLYETHYLENE GLYCOL 3350\POTASSIUM CHLORIDE\SODIUM BICARBONATE\SODIUM CHLORIDE
     Dosage: 13.81 GRAM
     Dates: start: 20200214
  11. TOREM [Concomitant]
     Active Substance: TORSEMIDE
     Dosage: 5 MILLIGRAM
     Dates: start: 20200301
  12. LEVETIRACETAM. [Concomitant]
     Active Substance: LEVETIRACETAM
     Dosage: 1000 MILLIGRAM
     Dates: start: 20200203
  13. REMESTAN [Concomitant]
     Active Substance: TEMAZEPAM
     Dosage: 10 MILLIGRAM, PRN
     Dates: start: 20200219
  14. PALLADON [Concomitant]
     Active Substance: HYDROMORPHONE
     Dosage: 12 MILLIGRAM
     Dates: start: 20200214
  15. RAMIPRIL. [Concomitant]
     Active Substance: RAMIPRIL
     Dosage: 5 MILLIGRAM
     Dates: start: 20200214
  16. AMLODIPIN [Concomitant]
     Active Substance: AMLODIPINE BESYLATE
     Dosage: 40 MILLIGRAM
     Dates: start: 20200219

REACTIONS (1)
  - Bronchitis [Recovered/Resolved]

NARRATIVE: CASE EVENT DATE: 20200504
